FAERS Safety Report 6429572-2 (Version None)
Quarter: 2009Q4

REPORT INFORMATION
  Report Type: 
  Country: None (occurrence: None)
  Receive Date: 20091103
  Receipt Date: 20091023
  Transmission Date: 20100525
  Serious: Yes (Other)
  Sender: FDA-Public Use
  Company Number: 2009SP025464

PATIENT
  Age: 73 Year
  Sex: Male

DRUGS (2)
  1. INTEGRILIN [Suspect]
     Indication: ANGIOPLASTY
     Dosage: ONCE;IV
     Route: 042
  2. UNFRACTIONATED HEPARIN [Concomitant]

REACTIONS (5)
  - CATHETER SITE RELATED REACTION [None]
  - HAEMORRHAGIC DISORDER [None]
  - PETECHIAE [None]
  - THROMBOCYTOPENIA [None]
  - WOUND SECRETION [None]
